FAERS Safety Report 13552471 (Version 5)
Quarter: 2017Q3

REPORT INFORMATION
  Report Type: Report from Study
  Country: DE (occurrence: DE)
  Receive Date: 20170517
  Receipt Date: 20170822
  Transmission Date: 20171127
  Serious: Yes (Hospitalization, Other)
  Sender: FDA-Public Use
  Company Number: DE-BRISTOL-MYERS SQUIBB COMPANY-BMS-2017-029836

PATIENT
  Age: 51 Year
  Sex: Male

DRUGS (9)
  1. ACETYLCYSTEIN [Concomitant]
     Active Substance: ACETYLCYSTEINE
     Indication: PROPHYLAXIS
     Dosage: 600 MG, UNK
     Route: 065
     Dates: start: 20161214
  2. SALBUTAMOL [Concomitant]
     Active Substance: ALBUTEROL
     Indication: LUNG DISORDER
     Dosage: 0.1 MG, UNK
     Route: 065
     Dates: start: 20170120
  3. IRENAT [Concomitant]
     Active Substance: SODIUM PERCHLORATE MONOHYDRATE
     Indication: METABOLIC DISORDER
     Dosage: 40 ML, UNK
     Route: 065
     Dates: start: 20170308
  4. NIVOLUMAB [Suspect]
     Active Substance: NIVOLUMAB
     Indication: NON-SMALL CELL LUNG CANCER
     Dosage: 3 MG/KG, Q2WK
     Route: 042
     Dates: start: 20161111, end: 20170720
  5. BISOPROLOL [Concomitant]
     Active Substance: BISOPROLOL
     Indication: CEREBROVASCULAR DISORDER
     Dosage: 2.5 MG, UNK
     Route: 065
     Dates: start: 20161214
  6. SYMBICORT [Concomitant]
     Active Substance: BUDESONIDE\FORMOTEROL FUMARATE DIHYDRATE
     Indication: LUNG DISORDER
     Dosage: UNK
     Route: 065
     Dates: start: 20170215
  7. LYRICA [Concomitant]
     Active Substance: PREGABALIN
     Indication: MALIGNANT NEOPLASM PROGRESSION
     Dosage: 75 MG, UNK
     Route: 065
     Dates: start: 20161111
  8. BISOPROLOL [Concomitant]
     Active Substance: BISOPROLOL
     Indication: PRODUCT USED FOR UNKNOWN INDICATION
     Dosage: 2.12 UNK, UNK
     Route: 065
  9. FRESUBIN                           /07459901/ [Concomitant]
     Active Substance: CARBOHYDRATES\FATTY ACIDS\MINERALS\PROTEIN\VITAMINS
     Indication: PROPHYLAXIS
     Dosage: 200 ML, UNK
     Route: 065
     Dates: start: 20170502

REACTIONS (5)
  - Polyneuropathy [Recovered/Resolved]
  - Blood calcium increased [Not Recovered/Not Resolved]
  - Thrombocytosis [Not Recovered/Not Resolved]
  - Laryngitis [Recovered/Resolved]
  - Malignant neoplasm progression [Not Recovered/Not Resolved]

NARRATIVE: CASE EVENT DATE: 20170301
